FAERS Safety Report 6314484-5 (Version None)
Quarter: 2009Q3

REPORT INFORMATION
  Report Type: 
  Country: None (occurrence: None)
  Receive Date: 20090819
  Receipt Date: 20090812
  Transmission Date: 20100115
  Serious: Yes (Other)
  Sender: FDA-Public Use
  Company Number: GB-B.I. PHARMACEUTICALS,INC./RIDGEFIELD-2009-UK-00706UK

PATIENT
  Sex: Male
  Weight: 85.9 kg

DRUGS (2)
  1. MOBIC [Suspect]
     Indication: MUSCULOSKELETAL PAIN
     Route: 048
     Dates: start: 20090727, end: 20090727
  2. VENTOLIN [Concomitant]
     Indication: ASTHMA
     Dosage: 100MCG AS NECESSARY
     Route: 055
     Dates: start: 19970101

REACTIONS (3)
  - PRURITUS [None]
  - URTICARIA [None]
  - WHEEZING [None]
